FAERS Safety Report 23171014 (Version 1)
Quarter: 2023Q4

REPORT INFORMATION
  Report Type: Spontaneous
  Country: AU (occurrence: AU)
  Receive Date: 20231110
  Receipt Date: 20231110
  Transmission Date: 20240110
  Serious: Yes (Other)
  Sender: FDA-Public Use
  Company Number: AU-AMERICAN REGENT INC-2023002557

PATIENT
  Age: 22 Year
  Sex: Female
  Weight: 144 kg

DRUGS (2)
  1. FERINJECT [Suspect]
     Active Substance: FERRIC CARBOXYMALTOSE
     Indication: Product used for unknown indication
     Dosage: 1000 MILLIGRAM, SINGLE
  2. FERROUS SULFATE [Suspect]
     Active Substance: FERROUS SULFATE
     Indication: Product used for unknown indication
     Dosage: 30 TABLETS, 325MG (105 MG ELEMENTAL IRON PER TABLET; 3150 MG IRON; 22 MG/KG (30 DOSAGE FORMS)
     Route: 048

REACTIONS (2)
  - Blood iron increased [Recovering/Resolving]
  - Overdose [Unknown]
